FAERS Safety Report 8986595 (Version 2)
Quarter: 2013Q1

REPORT INFORMATION
  Report Type: Spontaneous
  Country: DE (occurrence: DE)
  Receive Date: 20121227
  Receipt Date: 20130220
  Transmission Date: 20140127
  Serious: Yes (Hospitalization, Other)
  Sender: FDA-Public Use
  Company Number: DE-ELI_LILLY_AND_COMPANY-DE201212005923

PATIENT
  Sex: Female

DRUGS (2)
  1. FORSTEO [Suspect]
     Indication: OSTEOPOROSIS
     Dosage: UNK, QD
     Route: 058
     Dates: start: 20110503
  2. FORSTEO [Suspect]
     Dosage: UNK

REACTIONS (3)
  - Thoracic vertebral fracture [Not Recovered/Not Resolved]
  - Fall [Unknown]
  - Device failure [Not Recovered/Not Resolved]
